FAERS Safety Report 8458513-1 (Version None)
Quarter: 2012Q2

REPORT INFORMATION
  Report Type: 
  Country: None (occurrence: None)
  Receive Date: 20120622
  Receipt Date: 20120612
  Transmission Date: 20120825
  Serious: No
  Sender: FDA-Public Use
  Company Number: BR-JNJFOC-20120605913

PATIENT
  Sex: Female

DRUGS (2)
  1. REMICADE [Suspect]
     Indication: PSORIATIC ARTHROPATHY
     Route: 042
  2. METHOTREXATE [Concomitant]
     Dosage: DOSE: 7.5 TO 20 MG
     Route: 065

REACTIONS (1)
  - ANTINUCLEAR ANTIBODY POSITIVE [None]
